FAERS Safety Report 12035717 (Version 1)
Quarter: 2016Q1

REPORT INFORMATION
  Report Type: Spontaneous
  Country: PL (occurrence: PL)
  Receive Date: 20160207
  Receipt Date: 20160207
  Transmission Date: 20160526
  Serious: Yes (Other)
  Sender: FDA-Public Use
  Company Number: PL-TEVA-630785ACC

PATIENT
  Age: 30 Year
  Sex: Female

DRUGS (1)
  1. METFORMAX TEVA [Suspect]
     Active Substance: METFORMIN HYDROCHLORIDE
     Dosage: 2 DOSAGE FORMS DAILY;

REACTIONS (11)
  - Dizziness [Unknown]
  - Malaise [Unknown]
  - Headache [Unknown]
  - Epistaxis [Unknown]
  - Extrasystoles [Unknown]
  - Heart rate increased [Unknown]
  - Haemorrhage subcutaneous [Unknown]
  - Feeling abnormal [Unknown]
  - Blood pressure increased [Unknown]
  - Eye haemorrhage [Unknown]
  - Blood pressure fluctuation [Unknown]
